FAERS Safety Report 9726245 (Version 2)
Quarter: 2014Q1

REPORT INFORMATION
  Report Type: Spontaneous
  Country: FR (occurrence: FR)
  Receive Date: 20131203
  Receipt Date: 20140324
  Transmission Date: 20141002
  Serious: Yes (Hospitalization)
  Sender: FDA-Public Use
  Company Number: FR-BAXTER-2013BAX046983

PATIENT
  Age: 71 Year
  Sex: Male

DRUGS (24)
  1. ENDOXAN 50 MG, COMPRIM? ENROB? [Suspect]
     Indication: CHRONIC LYMPHOCYTIC LEUKAEMIA
     Route: 048
     Dates: start: 20130924
  2. ENDOXAN 50 MG, COMPRIM? ENROB? [Suspect]
     Route: 048
     Dates: start: 20131024
  3. ENDOXAN 50 MG, COMPRIM? ENROB? [Suspect]
     Route: 048
     Dates: end: 20131026
  4. ENDOXAN 50 MG, COMPRIM? ENROB? [Suspect]
     Route: 065
     Dates: start: 20140218
  5. MABTHERA [Suspect]
     Indication: CHRONIC LYMPHOCYTIC LEUKAEMIA
     Route: 042
     Dates: start: 20130924
  6. MABTHERA [Suspect]
     Route: 042
     Dates: start: 20131024
  7. MABTHERA [Suspect]
     Route: 042
     Dates: end: 20131026
  8. MABTHERA [Suspect]
     Route: 065
     Dates: start: 20140218
  9. FLUDARA [Suspect]
     Indication: CHRONIC LYMPHOCYTIC LEUKAEMIA
     Route: 048
     Dates: start: 20130924
  10. FLUDARA [Suspect]
     Route: 048
     Dates: start: 20131024
  11. FLUDARA [Suspect]
     Route: 048
     Dates: end: 20131026
  12. FLUDARA [Suspect]
     Route: 065
     Dates: start: 20140218
  13. SULFAMETHOXAZOLE/TRIMETHOPRIM [Suspect]
     Indication: PRODUCT USED FOR UNKNOWN INDICATION
     Route: 048
     Dates: start: 20130924, end: 20131029
  14. ZELITREX [Suspect]
     Indication: PRODUCT USED FOR UNKNOWN INDICATION
     Route: 048
     Dates: start: 20130924, end: 20131029
  15. ALFUZOSINE HYDROCHLORIDE [Suspect]
     Indication: PRODUCT USED FOR UNKNOWN INDICATION
     Route: 048
     Dates: start: 20131005, end: 20131101
  16. INEXIUM [Concomitant]
     Indication: ADJUVANT THERAPY
     Route: 065
  17. PRAVASTATINE [Concomitant]
     Indication: ADJUVANT THERAPY
     Route: 065
  18. FLECAINE [Concomitant]
     Indication: ADJUVANT THERAPY
     Route: 065
  19. KARDEGIC [Concomitant]
     Indication: ADJUVANT THERAPY
     Route: 065
  20. METFORMINE [Concomitant]
     Indication: ADJUVANT THERAPY
     Route: 065
  21. INNOHEP [Concomitant]
     Indication: PRODUCT USED FOR UNKNOWN INDICATION
     Route: 065
     Dates: start: 201309
  22. LENOGRASTIM [Concomitant]
     Indication: PRODUCT USED FOR UNKNOWN INDICATION
     Dates: start: 20131030, end: 20131104
  23. PENTACARINAT [Concomitant]
     Indication: PRODUCT USED FOR UNKNOWN INDICATION
     Route: 065
     Dates: start: 20131029
  24. DESLORATADINE [Concomitant]
     Indication: PRODUCT USED FOR UNKNOWN INDICATION
     Route: 065
     Dates: start: 20131029

REACTIONS (2)
  - Drug reaction with eosinophilia and systemic symptoms [Recovered/Resolved]
  - Rash [Unknown]
